FAERS Safety Report 25331632 (Version 1)
Quarter: 2025Q2

REPORT INFORMATION
  Report Type: Spontaneous
  Country: US (occurrence: None)
  Receive Date: 20250519
  Receipt Date: 20250519
  Transmission Date: 20250716
  Serious: Yes (Other)
  Sender: FDA-CTU
  Company Number: None

PATIENT
  Sex: Female
  Weight: 66.6 kg

DRUGS (1)
  1. CLINDAMYCIN HYDROCHLORIDE [Suspect]
     Active Substance: CLINDAMYCIN HYDROCHLORIDE
     Indication: Pharyngitis streptococcal
     Dosage: OTHER QUANTITY : 3 CAPSULE(S);?FREQUENCY : EVERY 8 HOURS;?
     Route: 048

REACTIONS (1)
  - Ear, nose and throat disorder [None]
